FAERS Safety Report 18752837 (Version 1)
Quarter: 2021Q1

REPORT INFORMATION
  Report Type: Report from Study
  Country: AU (occurrence: AU)
  Receive Date: 20210118
  Receipt Date: 20210118
  Transmission Date: 20210419
  Serious: Yes (Other)
  Sender: FDA-Public Use
  Company Number: PHHY2018AU056206

PATIENT
  Sex: Male

DRUGS (1)
  1. COSENTYX [Suspect]
     Active Substance: SECUKINUMAB
     Indication: ANKYLOSING SPONDYLITIS
     Dosage: 150 MG, QMO
     Route: 058

REACTIONS (5)
  - Ankylosing spondylitis [Unknown]
  - Inappropriate schedule of product administration [Unknown]
  - Neurodegenerative disorder [Unknown]
  - Cardiac disorder [Unknown]
  - Product supply issue [Unknown]
